FAERS Safety Report 4863892-8 (Version None)
Quarter: 2005Q4

REPORT INFORMATION
  Report Type: 
  Country: None (occurrence: None)
  Receive Date: 20051219
  Receipt Date: 20051208
  Transmission Date: 20060501
  Serious: Yes (Other)
  Sender: FDA-Public Use
  Company Number: 2005-12-0369

PATIENT
  Sex: Female

DRUGS (1)
  1. PEG-INTRON [Suspect]
     Indication: POLYCYTHAEMIA VERA
     Dosage: SUBCUTANEOUS
     Route: 058

REACTIONS (1)
  - ACUTE PULMONARY OEDEMA [None]
